FAERS Safety Report 5510545-9 (Version None)
Quarter: 2007Q4

REPORT INFORMATION
  Report Type: 
  Country: None (occurrence: None)
  Receive Date: 20071108
  Receipt Date: 20071031
  Transmission Date: 20080405
  Serious: Yes (Hospitalization)
  Sender: FDA-Public Use
  Company Number: US-ELI_LILLY_AND_COMPANY-US200711000087

PATIENT
  Age: 82 Year
  Sex: Male

DRUGS (7)
  1. HUMULIN N [Suspect]
     Dosage: 20 U, EACH MORNING
  2. HUMULIN N [Suspect]
     Dosage: 24 U, EACH EVENING
  3. HUMULIN R [Suspect]
     Indication: DIABETES MELLITUS
     Dosage: 16 U, EACH MORNING
  4. HUMULIN R [Suspect]
     Dosage: 24 U, EACH EVENING
  5. LISINOPRIL [Concomitant]
     Dosage: UNK, 2/D
  6. LOVASTIN [Concomitant]
     Dosage: 40 UNK, DAILY (1/D)
  7. DILTIAZEM [Concomitant]
     Dosage: 240 UNK, UNK

REACTIONS (9)
  - ARTHROPATHY [None]
  - BLOOD GLUCOSE DECREASED [None]
  - CONFUSIONAL STATE [None]
  - DIZZINESS [None]
  - FALL [None]
  - GAIT DISTURBANCE [None]
  - HIP FRACTURE [None]
  - POLIOMYELITIS [None]
  - WEIGHT DECREASED [None]
